FAERS Safety Report 19504426 (Version 2)
Quarter: 2022Q1

REPORT INFORMATION
  Report Type: Spontaneous
  Country: US (occurrence: US)
  Receive Date: 20210707
  Receipt Date: 20220107
  Transmission Date: 20220423
  Serious: Yes (Other)
  Sender: FDA-Public Use
  Company Number: US-GILEAD-2021-0539476

PATIENT
  Age: 63 Year
  Sex: Female
  Weight: 81.633 kg

DRUGS (63)
  1. TRUVADA [Suspect]
     Active Substance: EMTRICITABINE\TENOFOVIR DISOPROXIL FUMARATE
     Indication: HIV infection
     Dosage: UNK
     Route: 048
     Dates: start: 2009
  2. TRUVADA [Suspect]
     Active Substance: EMTRICITABINE\TENOFOVIR DISOPROXIL FUMARATE
     Dosage: UNK
     Route: 048
     Dates: start: 2004, end: 2014
  3. TRIUMEQ [Concomitant]
     Active Substance: ABACAVIR SULFATE\DOLUTEGRAVIR SODIUM\LAMIVUDINE
  4. ADDERALL [Concomitant]
     Active Substance: AMPHETAMINE ASPARTATE\AMPHETAMINE SULFATE\DEXTROAMPHETAMINE SACCHARATE\DEXTROAMPHETAMINE SULFATE
  5. ADVIL [Concomitant]
     Active Substance: IBUPROFEN
  6. AMITIZA [Concomitant]
     Active Substance: LUBIPROSTONE
  7. AMOXICILLIN\CLAVULANIC ACID [Concomitant]
     Active Substance: AMOXICILLIN\CLAVULANIC ACID
  8. DEXTROAMPHETAMINE [Concomitant]
     Active Substance: DEXTROAMPHETAMINE
  9. AMPHETAMINE [Concomitant]
     Active Substance: AMPHETAMINE
  10. BENZONATATE [Concomitant]
     Active Substance: BENZONATATE
  11. CALCIUM CITRATE [Concomitant]
     Active Substance: CALCIUM CITRATE
  12. CLONAZEPAM [Concomitant]
     Active Substance: CLONAZEPAM
  13. CLONIDINE [Concomitant]
     Active Substance: CLONIDINE
  14. CATAPRES [Concomitant]
     Active Substance: CLONIDINE HYDROCHLORIDE
  15. CYCLOBENZAPRINE [Concomitant]
     Active Substance: CYCLOBENZAPRINE
  16. DEXAMETHASONE [Concomitant]
     Active Substance: DEXAMETHASONE
  17. DIAZEPAM [Concomitant]
     Active Substance: DIAZEPAM
  18. VALIUM [Concomitant]
     Active Substance: DIAZEPAM
  19. DIVALPROEX SODIUM [Concomitant]
     Active Substance: DIVALPROEX SODIUM
  20. COLACE [Concomitant]
     Active Substance: DOCUSATE SODIUM
  21. DOXYCYCLINE [Concomitant]
     Active Substance: DOXYCYCLINE
  22. EMBEDA [Concomitant]
     Active Substance: MORPHINE SULFATE\NALTREXONE HYDROCHLORIDE
  23. ESCITALOPRAM [Concomitant]
     Active Substance: ESCITALOPRAM OXALATE
  24. MOMETASONE FUROATE [Concomitant]
     Active Substance: MOMETASONE FUROATE
  25. FLUCELVAX NOS [Concomitant]
     Active Substance: INFLUENZA A VIRUS A/BRISBANE/10/2010 (H1N1) ANTIGEN (MDCK CELL DERIVED, PROPIOLACTONE INACTIVATED)\I
  26. FLUTICASONE [Concomitant]
     Active Substance: FLUTICASONE
  27. HYDROCHLOROTHIAZIDE [Concomitant]
     Active Substance: HYDROCHLOROTHIAZIDE
  28. HYDRODIURIL [Concomitant]
     Active Substance: HYDROCHLOROTHIAZIDE
  29. IBUPROFEN [Concomitant]
     Active Substance: IBUPROFEN
  30. IMITREX [Concomitant]
     Active Substance: SUMATRIPTAN SUCCINATE
  31. KLOR-CON [Concomitant]
     Active Substance: POTASSIUM CHLORIDE
  32. LAMOTRIGINE [Concomitant]
     Active Substance: LAMOTRIGINE
  33. LAMICTAL [Concomitant]
     Active Substance: LAMOTRIGINE
  34. LEVOCETIRIZINE [Concomitant]
     Active Substance: LEVOCETIRIZINE
  35. LEXAPRO [Concomitant]
     Active Substance: ESCITALOPRAM OXALATE
  36. METFORMIN [Concomitant]
     Active Substance: METFORMIN HYDROCHLORIDE
  37. METFORMIN [Concomitant]
     Active Substance: METFORMIN HYDROCHLORIDE
  38. MORPHABOND ER [Concomitant]
     Active Substance: MORPHINE SULFATE
  39. MORPHINE [Concomitant]
     Active Substance: MORPHINE
  40. MS CONTIN [Concomitant]
     Active Substance: MORPHINE SULFATE
  41. MUPIROCIN [Concomitant]
     Active Substance: MUPIROCIN
  42. OLANZAPINE [Concomitant]
     Active Substance: OLANZAPINE
  43. ONDANSETRON [Concomitant]
     Active Substance: ONDANSETRON
  44. DEXTROSE [Concomitant]
     Active Substance: DEXTROSE
  45. OXYCODONE [Concomitant]
     Active Substance: OXYCODONE
  46. PANTOPRAZOLE [Concomitant]
     Active Substance: PANTOPRAZOLE
  47. PEG [MACROGOL] [Concomitant]
  48. POTASSIUM [Concomitant]
     Active Substance: POTASSIUM
  49. PREDNISONE [Concomitant]
     Active Substance: PREDNISONE
  50. PREGABALIN [Concomitant]
     Active Substance: PREGABALIN
  51. OMEPRAZOLE [Concomitant]
     Active Substance: OMEPRAZOLE
  52. CHLORMEZANONE [Concomitant]
     Active Substance: CHLORMEZANONE
  53. REXULTI [Concomitant]
     Active Substance: BREXPIPRAZOLE
  54. RISPERIDONE [Concomitant]
     Active Substance: RISPERIDONE
  55. ROXICODONE [Concomitant]
     Active Substance: OXYCODONE HYDROCHLORIDE
  56. SODIUM CHLORIDE [Concomitant]
     Active Substance: SODIUM CHLORIDE
  57. SUMATRIPTAN [Concomitant]
     Active Substance: SUMATRIPTAN
  58. TEMAZEPAM [Concomitant]
     Active Substance: TEMAZEPAM
  59. VISINE [TETRYZOLINE HYDROCHLORIDE] [Concomitant]
  60. VITAMIN D3 [Concomitant]
     Active Substance: CHOLECALCIFEROL
  61. XYZAL [Concomitant]
     Active Substance: LEVOCETIRIZINE DIHYDROCHLORIDE
  62. ZADITOR [Concomitant]
     Active Substance: KETOTIFEN FUMARATE
  63. ZOFRAN [Concomitant]
     Active Substance: ONDANSETRON HYDROCHLORIDE

REACTIONS (9)
  - Chronic kidney disease [Not Recovered/Not Resolved]
  - Osteoporosis [Not Recovered/Not Resolved]
  - Pain [Not Recovered/Not Resolved]
  - Emotional distress [Not Recovered/Not Resolved]
  - Anxiety [Not Recovered/Not Resolved]
  - Anhedonia [Not Recovered/Not Resolved]
  - Wrist fracture [Recovered/Resolved]
  - Decreased activity [Not Recovered/Not Resolved]
  - Renal impairment [Unknown]

NARRATIVE: CASE EVENT DATE: 20100101
